FAERS Safety Report 16786336 (Version 1)
Quarter: 2019Q3

REPORT INFORMATION
  Report Type: Spontaneous
  Country: US (occurrence: US)
  Receive Date: 20190909
  Receipt Date: 20190909
  Transmission Date: 20191005
  Serious: No
  Sender: FDA-Public Use
  Company Number: US-AMGEN-USASP2019144094

PATIENT
  Age: 56 Year
  Sex: Female

DRUGS (1)
  1. EVENITY [Suspect]
     Active Substance: ROMOSOZUMAB-AQQG
     Indication: OSTEONECROSIS
     Dosage: 210 MILLIGRAM, QMO
     Route: 065
     Dates: start: 20190715, end: 20190715

REACTIONS (4)
  - Off label use [Unknown]
  - Rash erythematous [Recovering/Resolving]
  - Scar [Unknown]
  - Rash pruritic [Recovering/Resolving]

NARRATIVE: CASE EVENT DATE: 20190715
